FAERS Safety Report 21214967 (Version 1)
Quarter: 2022Q3

REPORT INFORMATION
  Report Type: Spontaneous
  Country: US (occurrence: None)
  Receive Date: 20220816
  Receipt Date: 20220816
  Transmission Date: 20221026
  Serious: No
  Sender: FDA-Public Use
  Company Number: US-ROCHE-3144095

PATIENT
  Age: 20 Year
  Sex: Female
  Weight: 48.578 kg

DRUGS (3)
  1. EVRYSDI [Suspect]
     Active Substance: RISDIPLAM
     Indication: Spinal muscular atrophy
     Dosage: EVERY EVENING
     Route: 048
     Dates: start: 20211109
  2. EVRYSDI [Suspect]
     Active Substance: RISDIPLAM
     Route: 048
     Dates: start: 20210915
  3. AUROVELA [Concomitant]
     Indication: Contraception
     Dosage: 1.5-30
     Route: 048

REACTIONS (5)
  - Product preparation error [Unknown]
  - Underdose [Unknown]
  - Rash [Not Recovered/Not Resolved]
  - Arthropod bite [Not Recovered/Not Resolved]
  - Product packaging quantity issue [Unknown]

NARRATIVE: CASE EVENT DATE: 20211109
